FAERS Safety Report 5065880-8 (Version None)
Quarter: 2006Q3

REPORT INFORMATION
  Report Type: 
  Country: None (occurrence: None)
  Receive Date: 20060731
  Receipt Date: 20050824
  Transmission Date: 20061208
  Serious: Yes (Hospitalization)
  Sender: FDA-Public Use
  Company Number: US-BRISTOL-MYERS SQUIBB COMPANY-13088042

PATIENT
  Age: 70 Year
  Sex: Female
  Weight: 49 kg

DRUGS (15)
  1. ERBITUX [Suspect]
     Indication: COLON CANCER
     Route: 042
     Dates: start: 20050811, end: 20050811
  2. IRINOTECAN HCL [Suspect]
     Indication: COLON CANCER
     Route: 042
     Dates: start: 20050804, end: 20050804
  3. XELODA [Suspect]
     Indication: COLON CANCER
     Route: 048
     Dates: start: 20050714
  4. LISINOPRIL [Concomitant]
     Dates: start: 20020101
  5. COREG [Concomitant]
     Dates: start: 20020101
  6. TEGRETOL [Concomitant]
     Dates: start: 20020101
  7. TRAZODONE HCL [Concomitant]
     Dates: start: 20030101
  8. ZOLOFT [Concomitant]
     Dates: start: 20030101
  9. SYNTHROID [Concomitant]
  10. TEMAZEPAM [Concomitant]
     Dates: start: 20050701
  11. LOMOTIL [Concomitant]
  12. TUMS [Concomitant]
  13. MOTRIN [Concomitant]
  14. IMODIUM [Concomitant]
  15. KAOPECTATE [Concomitant]

REACTIONS (4)
  - DIARRHOEA [None]
  - HYPOKALAEMIA [None]
  - HYPOMAGNESAEMIA [None]
  - URINARY TRACT INFECTION [None]
